FAERS Safety Report 6573809-6 (Version None)
Quarter: 2010Q1

REPORT INFORMATION
  Report Type: 
  Country: None (occurrence: None)
  Receive Date: 20100208
  Receipt Date: 20100128
  Transmission Date: 20100710
  Serious: Yes (Death, Hospitalization)
  Sender: FDA-Public Use
  Company Number: CG-MERCK-1001USA03823

PATIENT
  Age: 35 Year
  Sex: Male

DRUGS (1)
  1. STROMECTOL [Suspect]
     Route: 048
     Dates: start: 20091203, end: 20091203

REACTIONS (12)
  - ABDOMINAL PAIN UPPER [None]
  - ABNORMAL BEHAVIOUR [None]
  - AGITATION [None]
  - ALCOHOL USE [None]
  - ASTHENIA [None]
  - CIRCULATORY COLLAPSE [None]
  - COUGH [None]
  - ENCEPHALOPATHY [None]
  - GAIT DISTURBANCE [None]
  - GASTRIC ULCER [None]
  - HAEMATEMESIS [None]
  - PULMONARY TUBERCULOSIS [None]
